FAERS Safety Report 10857592 (Version 1)
Quarter: 2015Q1

REPORT INFORMATION
  Report Type: Spontaneous
  Country: US (occurrence: US)
  Receive Date: 20150223
  Receipt Date: 20150223
  Transmission Date: 20150721
  Serious: No
  Sender: FDA-Public Use
  Company Number: US-B.I. PHARMACEUTICALS,INC./RIDGEFIELD-2015-BI-07655BP

PATIENT
  Sex: Female

DRUGS (3)
  1. MOBIC [Suspect]
     Active Substance: MELOXICAM
     Indication: KNEE ARTHROPLASTY
  2. MOBIC [Suspect]
     Active Substance: MELOXICAM
     Indication: OSTEOARTHRITIS
     Dosage: 200 MG
     Route: 065
     Dates: start: 2003, end: 2012
  3. MOBIC [Suspect]
     Active Substance: MELOXICAM
     Indication: ARTHRITIS

REACTIONS (2)
  - Gastric ulcer [Unknown]
  - Drug ineffective [Unknown]
